FAERS Safety Report 10559452 (Version 1)
Quarter: 2014Q4

REPORT INFORMATION
  Report Type: Spontaneous
  Country: US (occurrence: None)
  Receive Date: 20141031
  Receipt Date: 20141031
  Transmission Date: 20150529
  Serious: No
  Sender: FDA-Public Use
  Company Number: None

PATIENT
  Age: 62 Year
  Sex: Male
  Weight: 97.52 kg

DRUGS (1)
  1. CRESTOR [Suspect]
     Active Substance: ROSUVASTATIN CALCIUM
     Indication: BLOOD CHOLESTEROL INCREASED
     Dosage: 1 PER DAY
     Route: 048

REACTIONS (6)
  - Chromaturia [None]
  - Pain [None]
  - Renal disorder [None]
  - Liver injury [None]
  - Myalgia [None]
  - Blood urine present [None]

NARRATIVE: CASE EVENT DATE: 20130101
